FAERS Safety Report 20222638 (Version 1)
Quarter: 2021Q4

REPORT INFORMATION
  Report Type: Spontaneous
  Country: US (occurrence: US)
  Receive Date: 20211223
  Receipt Date: 20211223
  Transmission Date: 20220303
  Serious: No
  Sender: FDA-Public Use
  Company Number: US-BoehringerIngelheim-2021-BI-145180

PATIENT
  Age: 53 Year
  Sex: Female

DRUGS (1)
  1. JARDIANCE [Suspect]
     Active Substance: EMPAGLIFLOZIN
     Indication: Product used for unknown indication

REACTIONS (5)
  - Cystitis [Unknown]
  - Fungal infection [Unknown]
  - Gastrointestinal disorder [Unknown]
  - Fungal infection [Unknown]
  - Urinary tract infection [Unknown]
